FAERS Safety Report 8572592-2 (Version None)
Quarter: 2012Q2

REPORT INFORMATION
  Report Type: 
  Country: None (occurrence: None)
  Receive Date: 20120420
  Receipt Date: 20120306
  Transmission Date: 20120825
  Serious: Yes (Hospitalization)
  Sender: FDA-Public Use
  Company Number: 2012AL000019

PATIENT
  Age: 82 Year
  Sex: Male
  Weight: 81.9 kg

DRUGS (10)
  1. FOLIC ACID [Concomitant]
  2. METOPROLOL TARTRATE [Concomitant]
  3. NITROGLYCERIN [Concomitant]
  4. COMPAZINE [Concomitant]
  5. OXALIPLATIN [Suspect]
     Indication: OESOPHAGEAL ADENOCARCINOMA
     Dosage: 85 MG/M**2; ;IV
     Route: 042
     Dates: start: 20120123, end: 20120220
  6. ASPIRIN [Concomitant]
  7. GLYBURIDE [Concomitant]
  8. SIMVASTATIN [Concomitant]
  9. FOLOTYN [Suspect]
     Indication: OESOPHAGEAL ADENOCARCINOMA
     Dosage: 100 MG/M**2; ;IV
     Route: 042
     Dates: start: 20120123, end: 20120220
  10. LISINOPRIL [Concomitant]

REACTIONS (1)
  - STOMATITIS [None]
